FAERS Safety Report 7446834-0 (Version None)
Quarter: 2011Q2

REPORT INFORMATION
  Report Type: 
  Country: None (occurrence: None)
  Receive Date: 20110429
  Receipt Date: 20101022
  Transmission Date: 20111010
  Serious: No
  Sender: FDA-Public Use
  Company Number: US-ASTRAZENECA-2010SE50144

PATIENT
  Sex: Female
  Weight: 56.7 kg

DRUGS (2)
  1. NEXIUM [Suspect]
     Indication: ULCER
     Route: 048
     Dates: start: 20101013
  2. NEXIUM [Suspect]
     Indication: GASTRITIS
     Route: 048
     Dates: start: 20101013

REACTIONS (4)
  - DRUG INEFFECTIVE [None]
  - PAIN [None]
  - DYSPEPSIA [None]
  - ABDOMINAL DISTENSION [None]
